FAERS Safety Report 8367161-3 (Version None)
Quarter: 2012Q1

REPORT INFORMATION
  Report Type: 
  Country: None (occurrence: None)
  Receive Date: 20120323
  Receipt Date: 20110720
  Transmission Date: 20120608
  Serious: Yes (Other)
  Sender: FDA-Public Use
  Company Number: 163-21880-11072571

PATIENT
  Age: 70 Year
  Sex: Male

DRUGS (4)
  1. REVLIMID [Suspect]
     Indication: MULTIPLE MYELOMA
     Dosage: 15 MG, 1 IN 1 D, PO, 10-5MG, DAILY, PO,  10 MG, 1 IN 1 D, PO
     Route: 048
     Dates: start: 20101101, end: 20110101
  2. REVLIMID [Suspect]
     Indication: MULTIPLE MYELOMA
     Dosage: 15 MG, 1 IN 1 D, PO, 10-5MG, DAILY, PO,  10 MG, 1 IN 1 D, PO
     Route: 048
     Dates: start: 20100909, end: 20100101
  3. REVLIMID [Suspect]
     Indication: MULTIPLE MYELOMA
     Dosage: 15 MG, 1 IN 1 D, PO, 10-5MG, DAILY, PO,  10 MG, 1 IN 1 D, PO
     Route: 048
     Dates: start: 20101001, end: 20100101
  4. REVLIMID [Suspect]
     Indication: MULTIPLE MYELOMA
     Dosage: 15 MG, 1 IN 1 D, PO, 10-5MG, DAILY, PO,  10 MG, 1 IN 1 D, PO
     Route: 048
     Dates: start: 20110501

REACTIONS (1)
  - WHITE BLOOD CELL COUNT DECREASED [None]
